FAERS Safety Report 8806397 (Version 4)
Quarter: 2013Q3

REPORT INFORMATION
  Report Type: Spontaneous
  Country: US (occurrence: US)
  Receive Date: 20120925
  Receipt Date: 20130814
  Transmission Date: 20140515
  Serious: Yes (Hospitalization, Disabling, Other)
  Sender: FDA-Public Use
  Company Number: US-BAYER-2012-098211

PATIENT
  Age: 28 Year
  Sex: Female

DRUGS (8)
  1. YAZ [Suspect]
  2. YASMIN [Suspect]
  3. OCELLA [Suspect]
  4. TAMIFLU [Concomitant]
     Dosage: UNK
     Route: 048
     Dates: start: 20060519
  5. TYLENOL [Concomitant]
     Dosage: UNK;PRN
     Dates: start: 20060526
  6. TYLENOL [Concomitant]
  7. MOTRIN [Concomitant]
     Dosage: UNK;PRN
     Dates: start: 20060526
  8. LIPITOR [Concomitant]

REACTIONS (8)
  - Thrombosis [None]
  - Injury [None]
  - Pain [None]
  - Thrombophlebitis superficial [Recovered/Resolved]
  - Emotional distress [None]
  - Fear of death [None]
  - Pain [None]
  - Anxiety [None]
